FAERS Safety Report 4393047-5 (Version None)
Quarter: 2004Q3

REPORT INFORMATION
  Report Type: 
  Country: None (occurrence: None)
  Receive Date: 20040708
  Receipt Date: 20040628
  Transmission Date: 20050211
  Serious: Yes (Death, Hospitalization)
  Sender: FDA-Public Use
  Company Number: GB-ROCHE-372322

PATIENT
  Age: 40 Year
  Sex: Male

DRUGS (10)
  1. MYCOPHENOLATE MOFETIL [Suspect]
     Indication: DRUG USE FOR UNKNOWN INDICATION
     Route: 065
  2. PEG-INTERFERON A-2A (RO 25-8310) [Interacting]
     Indication: DRUG USE FOR UNKNOWN INDICATION
     Route: 065
  3. ABACAVIR SULPHATE [Interacting]
     Route: 065
  4. LAMIVUDINE [Interacting]
     Route: 065
  5. EFAVIRENZ [Interacting]
     Route: 065
  6. DIDANOSINE [Interacting]
     Route: 065
  7. TENOFOVIR [Interacting]
     Route: 065
  8. STAVUDINE [Interacting]
     Route: 065
  9. TACROLIMUS [Interacting]
     Route: 065
  10. ZIDOVUDINE [Interacting]
     Indication: HIV INFECTION
     Route: 065
     Dates: start: 19850615

REACTIONS (15)
  - BLOOD BILIRUBIN INCREASED [None]
  - CEREBRAL HAEMORRHAGE [None]
  - CHOLESTASIS [None]
  - DRUG INTERACTION [None]
  - GRAND MAL CONVULSION [None]
  - HEADACHE [None]
  - HEPATIC FUNCTION ABNORMAL [None]
  - HEPATIC NECROSIS [None]
  - HYPERTENSION [None]
  - LACTIC ACIDOSIS [None]
  - MITOCHONDRIAL CYTOPATHY [None]
  - MITOCHONDRIAL TOXICITY [None]
  - NAUSEA [None]
  - NECROSIS [None]
  - VOMITING [None]
